FAERS Safety Report 6539074-0 (Version None)
Quarter: 2010Q1

REPORT INFORMATION
  Report Type: 
  Country: None (occurrence: None)
  Receive Date: 20100115
  Receipt Date: 20100107
  Transmission Date: 20100710
  Serious: Yes (Other)
  Sender: FDA-Public Use
  Company Number: PHHY2010DE01577

PATIENT
  Age: 63 Year
  Sex: Male

DRUGS (5)
  1. RASILEZ [Suspect]
     Dosage: 1 DF, QD
     Dates: start: 20090901, end: 20091101
  2. RASILEZ [Suspect]
     Dosage: 2 DF, QD
     Dates: start: 20091101, end: 20091101
  3. RASILEZ [Suspect]
     Dosage: 1.5 TABLETS PER DAY
     Dates: start: 20100101
  4. RASILEZ HCT [Suspect]
     Dosage: 1 DF, QD
     Dates: start: 20091101, end: 20100101
  5. PANTOPRAZOLE [Concomitant]
     Indication: GASTROOESOPHAGEAL REFLUX DISEASE

REACTIONS (10)
  - BLOOD PRESSURE INADEQUATELY CONTROLLED [None]
  - CONDITION AGGRAVATED [None]
  - COUGH [None]
  - DYSPNOEA EXERTIONAL [None]
  - ERYTHEMA [None]
  - MICTURITION URGENCY [None]
  - MYALGIA [None]
  - PRURITUS [None]
  - TACHYCARDIA [None]
  - URTICARIA [None]
